FAERS Safety Report 12702882 (Version 1)
Quarter: 2016Q3

REPORT INFORMATION
  Report Type: Spontaneous
  Country: AU (occurrence: AU)
  Receive Date: 20160831
  Receipt Date: 20160831
  Transmission Date: 20161109
  Serious: Yes (Other)
  Sender: FDA-Public Use
  Company Number: AU-AMGEN-AUSSP2016111141

PATIENT
  Age: 73 Year
  Sex: Female
  Weight: 41 kg

DRUGS (1)
  1. PROLIA [Suspect]
     Active Substance: DENOSUMAB
     Indication: BONE DENSITY ABNORMAL
     Dosage: Q6MO
     Route: 065
     Dates: start: 201403

REACTIONS (15)
  - Malaise [Unknown]
  - Hernia [Unknown]
  - Urine flow decreased [Unknown]
  - Weight abnormal [Unknown]
  - Nausea [Unknown]
  - Spinal column stenosis [Unknown]
  - Gastritis [Unknown]
  - Fall [Unknown]
  - Renal surgery [Unknown]
  - Blood cholesterol increased [Unknown]
  - Malabsorption [Unknown]
  - Transient ischaemic attack [Unknown]
  - Scoliosis [Unknown]
  - Limb injury [Unknown]
  - Low density lipoprotein increased [Unknown]

NARRATIVE: CASE EVENT DATE: 201502
